FAERS Safety Report 8666912 (Version 5)
Quarter: 2012Q4

REPORT INFORMATION
  Report Type: 
  Country: US (occurrence: US)
  Receive Date: 20120716
  Receipt Date: 20121207
  Transmission Date: 20130627
  Serious: Yes (Hospitalization, Other)
  Sender: FDA-Public Use
  Company Number: US-PFIZER INC-2012166828

PATIENT
  Age: 67 Year
  Sex: Female
  Weight: 68.03 kg

DRUGS (10)
  1. LYRICA [Suspect]
     Indication: NEUROPATHY PERIPHERAL
     Dosage: 50 mg, 3x/day
     Route: 048
     Dates: start: 201204, end: 20121013
  2. LYRICA [Suspect]
     Indication: NEUROPATHY PERIPHERAL
     Dosage: UNK
     Dates: start: 20121126
  3. LYRICA [Suspect]
     Indication: NEUROPATHY PERIPHERAL
  4. AVASTIN [Suspect]
     Indication: OVARIAN CANCER
     Dosage: 10 mg, once in every two weeks
     Dates: start: 20120709, end: 20121015
  5. UNSPECIFIED INGREDIENT [Suspect]
     Dosage: UNK
  6. KLOR-CON [Concomitant]
     Dosage: 10 ug, 1x/day
     Route: 048
  7. VITAMIN B6 [Concomitant]
     Dosage: 100 mg, 1x/day
     Route: 048
  8. VITAMIN B6 [Concomitant]
     Dosage: UNK, daily
  9. MAGNESIUM [Concomitant]
     Dosage: 400 mg, Daily
  10. POTASSIUM [Concomitant]
     Dosage: 10 mEq, 2x/day

REACTIONS (10)
  - Pneumonia staphylococcal [Unknown]
  - Large intestine perforation [Unknown]
  - Gastrointestinal infection [Unknown]
  - Ovarian cancer stage IV [Unknown]
  - Surgery [Unknown]
  - Neuropathy peripheral [Unknown]
  - Gastrointestinal disorder [Unknown]
  - Blood magnesium decreased [Unknown]
  - Blood glucose increased [Unknown]
  - Blood potassium decreased [Unknown]
